FAERS Safety Report 12216882 (Version 2)
Quarter: 2016Q2

REPORT INFORMATION
  Report Type: Spontaneous
  Country: NL (occurrence: NL)
  Receive Date: 20160329
  Receipt Date: 20160527
  Transmission Date: 20160815
  Serious: Yes (Death, Hospitalization)
  Sender: FDA-Public Use
  Company Number: NL-TOLMAR, INC.-2016NL002929

PATIENT
  Age: 83 Year
  Sex: Male

DRUGS (13)
  1. DOCETAXEL. [Suspect]
     Active Substance: DOCETAXEL
     Indication: CHEMOTHERAPY
     Dosage: 80 MG, UNK
     Route: 042
     Dates: start: 20160304, end: 20160305
  2. ESOMEPRAZOL                        /01479301/ [Concomitant]
     Active Substance: ESOMEPRAZOLE
     Dosage: 40 MG, UNK
     Dates: start: 20160211, end: 20160212
  3. SIMVASTATIN. [Concomitant]
     Active Substance: SIMVASTATIN
     Dosage: 20 MG, UNK
     Route: 065
     Dates: start: 20160211, end: 20160212
  4. SUCRALFATE. [Concomitant]
     Active Substance: SUCRALFATE
     Dosage: 1 G, UNK
     Dates: start: 20120110, end: 20160209
  5. ELIGARD [Suspect]
     Active Substance: LEUPROLIDE ACETATE
     Indication: PROSTATE CANCER
     Dosage: 22.5 MG, Q3MONTHS
     Route: 058
     Dates: start: 20160205
  6. TAMOXIFEN [Concomitant]
     Active Substance: TAMOXIFEN
     Dosage: 20 MG, UNK
     Dates: start: 20120208, end: 20160209
  7. DEXAMETHASONE. [Concomitant]
     Active Substance: DEXAMETHASONE
     Dosage: 4 MG, UNK
     Dates: start: 20160218
  8. PREDNISONE. [Concomitant]
     Active Substance: PREDNISONE
     Dosage: 5 MG, UNK
     Route: 065
     Dates: start: 20160304, end: 20160325
  9. METOCLOPRAMIDE. [Concomitant]
     Active Substance: METOCLOPRAMIDE
     Dosage: 10 MG, UNK
     Route: 065
     Dates: start: 20160218, end: 20160303
  10. PANTOPRAZOLE [Concomitant]
     Active Substance: PANTOPRAZOLE SODIUM
     Dosage: 40 MG, UNK
     Route: 065
     Dates: start: 20150630, end: 20160209
  11. CHOLECALCIFEROL [Concomitant]
     Active Substance: CHOLECALCIFEROL
     Dosage: 20000 IU, UNK
     Dates: start: 20160211
  12. PRAVASTATIN [Concomitant]
     Active Substance: PRAVASTATIN\PRAVASTATIN SODIUM
     Dosage: 40 MG, UNK
     Route: 065
     Dates: start: 20160212
  13. CARBASALATE CALCIUM [Concomitant]
     Active Substance: CARBASALATE
     Dosage: 100 MG, UNK
     Dates: start: 20150630, end: 20160209

REACTIONS (4)
  - Dehydration [Unknown]
  - Death [Fatal]
  - Vomiting [Unknown]
  - Nausea [Unknown]

NARRATIVE: CASE EVENT DATE: 20160308
